FAERS Safety Report 9420669 (Version 1)
Quarter: 2013Q3

REPORT INFORMATION
  Report Type: Spontaneous
  Country: AU (occurrence: AU)
  Receive Date: 20130725
  Receipt Date: 20130725
  Transmission Date: 20140515
  Serious: Yes (Other)
  Sender: FDA-Public Use
  Company Number: PHHY2013AU077921

PATIENT
  Sex: Female

DRUGS (1)
  1. DEFEROXAMINE [Suspect]

REACTIONS (2)
  - Optic neuropathy [Unknown]
  - Retinopathy [Unknown]
